FAERS Safety Report 12690566 (Version 3)
Quarter: 2016Q4

REPORT INFORMATION
  Report Type: Report from Study
  Country: None (occurrence: NL)
  Receive Date: 20160826
  Receipt Date: 20161123
  Transmission Date: 20170207
  Serious: Yes (Other)
  Sender: FDA-Public Use
  Company Number: NL-ABBVIE-16P-114-1710901-00

PATIENT
  Age: 67 Year
  Sex: Male
  Weight: 85 kg

DRUGS (5)
  1. LUPRON DEPOT [Suspect]
     Active Substance: LEUPROLIDE ACETATE
     Indication: PROSTATE CANCER
     Route: 050
     Dates: start: 20130906
  2. MAGNESIUM HYDROXIDE. [Concomitant]
     Active Substance: MAGNESIUM HYDROXIDE
     Indication: PRODUCT USED FOR UNKNOWN INDICATION
     Dosage: 1 OR 2 TABLETS, AS NECESSARY 1 TO 3 TIMES A DAY
     Route: 048
  3. LUPRON DEPOT [Suspect]
     Active Substance: LEUPROLIDE ACETATE
     Route: 050
  4. LUPRON DEPOT [Suspect]
     Active Substance: LEUPROLIDE ACETATE
     Route: 050
  5. METOCLOPRAMIDE. [Concomitant]
     Active Substance: METOCLOPRAMIDE
     Indication: PRODUCT USED FOR UNKNOWN INDICATION
     Dosage: 1 OR 2 TABLET, AS NECESSARY 1 TO 3 TIMES A DAYS
     Route: 048

REACTIONS (2)
  - Amyotrophic lateral sclerosis [Not Recovered/Not Resolved]
  - Prostatic specific antigen increased [Recovering/Resolving]

NARRATIVE: CASE EVENT DATE: 2013
